FAERS Safety Report 16469396 (Version 2)
Quarter: 2019Q3

REPORT INFORMATION
  Report Type: Other
  Country: CA (occurrence: CA)
  Receive Date: 20190624
  Receipt Date: 20190703
  Transmission Date: 20191004
  Serious: Yes (Hospitalization, Congenital Anomaly)
  Sender: FDA-Public Use
  Company Number: CA-APOTEX-2019AP016709

PATIENT
  Age: 1 Day
  Weight: 2 kg

DRUGS (10)
  1. QUETIAPINE. [Suspect]
     Active Substance: QUETIAPINE
     Indication: PRODUCT USED FOR UNKNOWN INDICATION
     Dosage: 300 MG, Q.12H, 1 EVERY 12 HOURS
     Route: 064
  2. ZOPICLONE [Suspect]
     Active Substance: ZOPICLONE
     Indication: PRODUCT USED FOR UNKNOWN INDICATION
     Dosage: UNK
     Route: 064
  3. NORTRIPTYLINE [Suspect]
     Active Substance: NORTRIPTYLINE
     Indication: PRODUCT USED FOR UNKNOWN INDICATION
     Dosage: 20 MG, QD, 1 EVERY 1 DAY
     Route: 064
  4. METHADONE [Suspect]
     Active Substance: METHADONE HYDROCHLORIDE
     Indication: DRUG ABUSER
     Dosage: 70 MG, QD, 1 EVERY 1 DAY
     Route: 064
  5. GABAPENTIN. [Suspect]
     Active Substance: GABAPENTIN
     Indication: PRODUCT USED FOR UNKNOWN INDICATION
     Dosage: 1800 MG, QD, 1 EVERY 1 DAY
     Route: 064
  6. METHADOSE SUGAR-FREE [Suspect]
     Active Substance: METHADONE HYDROCHLORIDE
     Indication: DRUG ABUSE
     Dosage: 70 MG, QD
     Route: 064
  7. BENZTROPINE. [Suspect]
     Active Substance: BENZTROPINE
     Indication: SEIZURE
     Dosage: 1.5 MG, QD, 1 EVERY 1 DAY
     Route: 064
  8. BENZTROPINE. [Suspect]
     Active Substance: BENZTROPINE
     Dosage: 1.5 MG, QD
     Route: 064
  9. ESCITALOPRAM [Suspect]
     Active Substance: ESCITALOPRAM OXALATE
     Indication: PRODUCT USED FOR UNKNOWN INDICATION
     Dosage: 20 MG, QD, 1 EVERY 1  DAY
     Route: 064
  10. RABEPRAZOLE [Suspect]
     Active Substance: RABEPRAZOLE
     Indication: PRODUCT USED FOR UNKNOWN INDICATION
     Dosage: UNK
     Route: 064

REACTIONS (9)
  - Drug withdrawal syndrome neonatal [Recovered/Resolved]
  - Foetal exposure during pregnancy [Recovered/Resolved]
  - Muscle tone disorder [Recovered/Resolved]
  - Tremor [Recovered/Resolved]
  - Premature baby [Recovered/Resolved]
  - Sleep disorder [Recovered/Resolved]
  - Trismus [Recovered/Resolved]
  - High-pitched crying [Recovered/Resolved]
  - Crying [Recovered/Resolved]
